FAERS Safety Report 21982689 (Version 9)
Quarter: 2024Q3

REPORT INFORMATION
  Report Type: Report from Study
  Country: US (occurrence: US)
  Receive Date: 20230213
  Receipt Date: 20240925
  Transmission Date: 20241017
  Serious: No
  Sender: GLAXOSMITHKLINE
  Company Number: US-GLAXOSMITHKLINE-US2023AMR019334

PATIENT
  Sex: Female

DRUGS (6)
  1. NIRAPARIB [Suspect]
     Active Substance: NIRAPARIB
     Indication: Ovarian cancer
     Dosage: 200 MG, QD
     Route: 048
     Dates: start: 20221226
  2. NIRAPARIB [Suspect]
     Active Substance: NIRAPARIB
     Indication: Fallopian tube cancer
     Dosage: 100 MG, QD
     Dates: start: 20230203
  3. NIRAPARIB [Suspect]
     Active Substance: NIRAPARIB
     Dosage: 100 MG, QD
     Dates: start: 202304
  4. NIRAPARIB [Suspect]
     Active Substance: NIRAPARIB
     Dosage: ALTERNATING 100 MG DAILY WITH 200 MG EVERY 3RD DAY
     Dates: start: 202304
  5. NIRAPARIB [Suspect]
     Active Substance: NIRAPARIB
     Dosage: 100 MG, QD
     Dates: start: 20230422
  6. NIRAPARIB [Suspect]
     Active Substance: NIRAPARIB
     Dosage: 100 MG, QD

REACTIONS (9)
  - Blood pressure increased [Recovering/Resolving]
  - Dyspepsia [Recovering/Resolving]
  - Gastrooesophageal reflux disease [Recovering/Resolving]
  - Tachycardia [Recovering/Resolving]
  - Palpitations [Not Recovered/Not Resolved]
  - Neoplasm [Recovered/Resolved]
  - Lymphadenopathy [Not Recovered/Not Resolved]
  - Pelvic neoplasm [Unknown]
  - Off label use [Not Recovered/Not Resolved]
